FAERS Safety Report 8584575-7 (Version None)
Quarter: 2012Q3

REPORT INFORMATION
  Report Type: 
  Country: None (occurrence: None)
  Receive Date: 20120730
  Receipt Date: 20120713
  Transmission Date: 20120928
  Serious: Yes (Hospitalization)
  Sender: FDA-Public Use
  Company Number: INT_00085_2012

PATIENT
  Age: 21 Year
  Sex: Male

DRUGS (1)
  1. CEFAZOLIN [Suspect]
     Indication: PROPHYLAXIS
     Dosage: 2 G1X), (1 G 1X/8 HOURS INTRAVENOUS (NOT OTHERWISE SPECIFIED))
     Route: 042

REACTIONS (6)
  - THROMBOCYTOPENIA [None]
  - NEUTROPENIA [None]
  - PYREXIA [None]
  - LEUKOCYTOSIS [None]
  - INCORRECT DRUG ADMINISTRATION DURATION [None]
  - BONE MARROW FAILURE [None]
